FAERS Safety Report 7160464-X (Version None)
Quarter: 2010Q4

REPORT INFORMATION
  Report Type: 
  Country: None (occurrence: None)
  Receive Date: 20101214
  Receipt Date: 20091125
  Transmission Date: 20110411
  Serious: No
  Sender: FDA-Public Use
  Company Number: US-AMGEN-KDL376744

PATIENT

DRUGS (10)
  1. ENBREL [Suspect]
     Indication: PRODUCT USED FOR UNKNOWN INDICATION
     Dosage: 50 MG, QWK
     Route: 058
  2. INSULIN HUMAN INJECTION, ISOPHANE [Concomitant]
     Dosage: UNK UNK, UNK
  3. METHOTREXATE [Concomitant]
     Dosage: 2.5 MG, UNK
  4. ICAPS [Concomitant]
     Dosage: UNK UNK, UNK
  5. AMLODIPINE BESYLATE [Concomitant]
     Dosage: 5 MG, UNK
  6. LEFLUNOMIDE [Concomitant]
     Dosage: 10 MG, UNK
  7. SIMVASTATIN [Concomitant]
     Dosage: 10 MG, UNK
  8. FOLIC ACID [Concomitant]
     Dosage: 1 MG, UNK
  9. GLIPIZIDE [Concomitant]
     Dosage: 5 MG, UNK
  10. OXYBUTYNIN [Concomitant]
     Dosage: 5 MG, UNK

REACTIONS (1)
  - SKIN LESION [None]
